FAERS Safety Report 17606625 (Version 4)
Quarter: 2023Q1

REPORT INFORMATION
  Report Type: Spontaneous
  Country: CA (occurrence: CA)
  Receive Date: 20200331
  Receipt Date: 20230223
  Transmission Date: 20230418
  Serious: Yes (Other)
  Sender: FDA-Public Use
  Company Number: CA-LEXICON PHARMACEUTICALS, INC-20-1606-00226

PATIENT

DRUGS (12)
  1. XERMELO [Suspect]
     Active Substance: TELOTRISTAT ETHYL
     Indication: Carcinoid syndrome
     Dosage: 90 MILLIGRAM
     Route: 048
     Dates: start: 20200302
  2. XERMELO [Suspect]
     Active Substance: TELOTRISTAT ETHYL
     Indication: Diarrhoea
     Dosage: 250 MILLIGRAM, EVERY 12 HOUR(S)
     Route: 048
     Dates: start: 20200219
  3. LANREOTIDE ACETATE [Suspect]
     Active Substance: LANREOTIDE ACETATE
     Indication: Carcinoid syndrome
     Dosage: 90 MILLIGRAM, EVERY 3 WEEKS
     Route: 058
     Dates: start: 20160630
  4. LANREOTIDE ACETATE [Suspect]
     Active Substance: LANREOTIDE ACETATE
     Indication: Neuroendocrine tumour
     Dosage: 120 MILLIGRAM, EVERY 3 WEEKS
     Route: 058
     Dates: start: 20221228
  5. OLESTYR LIGHT [Concomitant]
     Indication: Product used for unknown indication
     Dosage: UNK, (12/12 EMPTY HALF PACKET IN 120 TO 150ML OF WATER 1-2 TIMES PER DAY IF NEEDED FOR 12 MONTHS)
     Route: 065
  6. PROLIA [Concomitant]
     Active Substance: DENOSUMAB
     Indication: Product used for unknown indication
     Dosage: 60 MILLIGRAM EVERY 6 MONTH(S) 60MG/1ML INJ SYRINGE
     Route: 058
  7. METFORMIN [Concomitant]
     Active Substance: METFORMIN HYDROCHLORIDE
     Indication: Product used for unknown indication
     Dosage: 500 MG, QD (ONCE PER DAY AT LUNCH)
     Route: 065
  8. SYNTHROID [Concomitant]
     Active Substance: LEVOTHYROXINE SODIUM
     Indication: Product used for unknown indication
     Dosage: 100 MCG, (1 TABLET PER DAY WITH LUNCH REGULARLY)
     Route: 065
  9. CALCIUM CARBONATE [Concomitant]
     Active Substance: CALCIUM CARBONATE
     Indication: Product used for unknown indication
     Dosage: 500 MG, (ONCE PER DAY WHILE EATING)
     Route: 065
  10. CREON [Concomitant]
     Active Substance: PANCRELIPASE AMYLASE\PANCRELIPASE LIPASE\PANCRELIPASE PROTEASE
     Indication: Product used for unknown indication
     Dosage: 10000 INTERNATIONAL UNIT, QID (5 DOSAGE FORM EVERY 6 HOUR(S)/5 CAPSULES 4 TIMES PER DAY WHILE EATING
     Route: 065
  11. VITAMIN D3 [Concomitant]
     Active Substance: CHOLECALCIFEROL
     Indication: Product used for unknown indication
     Dosage: 1000 INTERNATIONAL UNIT, QD (1 DOSAGE FORM EVERY 1 DAY(S))
     Route: 065
  12. VITAMIN B12 [Concomitant]
     Active Substance: CYANOCOBALAMIN
     Indication: Product used for unknown indication
     Dosage: 1 DOSAGE FORM, QD ((1 DOSAGE FORM EVERY 1 DAY(S) ONE TABLET ONCE PER DAY)
     Route: 065

REACTIONS (9)
  - Disease progression [Unknown]
  - Dizziness [Unknown]
  - Dyspepsia [Not Recovered/Not Resolved]
  - Rash [Recovering/Resolving]
  - Nausea [Not Recovered/Not Resolved]
  - Fatigue [Unknown]
  - Peripheral swelling [Recovering/Resolving]
  - Blood test abnormal [Unknown]
  - Off label use [Unknown]

NARRATIVE: CASE EVENT DATE: 20200301
